FAERS Safety Report 5750031-4 (Version None)
Quarter: 2008Q2

REPORT INFORMATION
  Report Type: 
  Country: None (occurrence: None)
  Receive Date: 20080527
  Receipt Date: 20080522
  Transmission Date: 20081010
  Serious: Yes (Death)
  Sender: FDA-Public Use
  Company Number: GB-BOEHRINGER INGELHEIM GMBH, GERMANY-2008-UK-01054UK

PATIENT
  Age: 63 Year
  Sex: Male

DRUGS (9)
  1. TIOTROPIUM (00015/0190/A) [Suspect]
     Indication: CHRONIC OBSTRUCTIVE PULMONARY DISEASE
     Route: 055
     Dates: start: 20080320
  2. FLUOXETINE HCL [Concomitant]
     Route: 048
  3. HYDROXYCHLOROQUINE SULFATE [Concomitant]
     Route: 048
  4. IPRATROPIUM BROMIDE [Concomitant]
     Route: 055
  5. SALAZOPYRIN [Concomitant]
     Route: 048
  6. ALBUTEROL [Concomitant]
  7. SENNA [Concomitant]
     Route: 048
  8. SERETIDE [Concomitant]
     Route: 055
  9. TRAMADOL HCL [Concomitant]

REACTIONS (2)
  - ARRHYTHMIA [None]
  - EMPHYSEMA [None]
